FAERS Safety Report 6800947-2 (Version None)
Quarter: 2010Q2

REPORT INFORMATION
  Report Type: 
  Country: None (occurrence: None)
  Receive Date: 20100629
  Receipt Date: 20100624
  Transmission Date: 20101027
  Serious: Yes (Death)
  Sender: FDA-Public Use
  Company Number: PHHY2010US37214

PATIENT
  Sex: Female

DRUGS (1)
  1. EXJADE [Suspect]
     Indication: NEOPLASM
     Dosage: 1250 MG DAILY
     Route: 048

REACTIONS (3)
  - DEATH [None]
  - FATIGUE [None]
  - HEART RATE IRREGULAR [None]
